FAERS Safety Report 16092303 (Version 1)
Quarter: 2019Q1

REPORT INFORMATION
  Report Type: Spontaneous
  Country: US (occurrence: US)
  Receive Date: 20190319
  Receipt Date: 20190319
  Transmission Date: 20190418
  Serious: Yes (Other)
  Sender: FDA-Public Use
  Company Number: US-ALLERGAN-1911722US

PATIENT
  Sex: Female

DRUGS (2)
  1. BOTOX [Suspect]
     Active Substance: ONABOTULINUMTOXINA
     Indication: NECK PAIN
  2. BOTOX [Suspect]
     Active Substance: ONABOTULINUMTOXINA
     Indication: HEADACHE
     Dosage: UNK, SINGLE
     Route: 030

REACTIONS (6)
  - Hypotonia [Recovered/Resolved]
  - Dropped head syndrome [Recovered/Resolved]
  - Off label use [Unknown]
  - Kyphosis [Recovered/Resolved]
  - Ligament sprain [Recovered/Resolved]
  - Spinal flattening [Recovered/Resolved]
